FAERS Safety Report 6960867-X (Version None)
Quarter: 2010Q3

REPORT INFORMATION
  Report Type: 
  Country: None (occurrence: None)
  Receive Date: 20100830
  Receipt Date: 20100824
  Transmission Date: 20110219
  Serious: Yes (Hospitalization)
  Sender: FDA-Public Use
  Company Number: 2010GW000677

PATIENT
  Age: 64 Year
  Sex: Male

DRUGS (1)
  1. ZYCLARA [Suspect]
     Indication: BASAL CELL CARCINOMA
     Dosage: 3.75 PCT; ; TOP
     Route: 061

REACTIONS (7)
  - CAROTID ARTERIOSCLEROSIS [None]
  - DIZZINESS [None]
  - FATIGUE [None]
  - HYPERTENSION [None]
  - HYPOAESTHESIA [None]
  - INFLUENZA LIKE ILLNESS [None]
  - ULTRASOUND DOPPLER ABNORMAL [None]
